FAERS Safety Report 8846849 (Version 1)
Quarter: 2012Q4

REPORT INFORMATION
  Report Type: Spontaneous
  Country: US (occurrence: None)
  Receive Date: 20121016
  Receipt Date: 20121016
  Transmission Date: 20130627
  Serious: Yes (Hospitalization)
  Sender: FDA-Public Use
  Company Number: US-2012-11278

PATIENT
  Age: 60 Year
  Sex: Male
  Weight: 94 kg

DRUGS (20)
  1. CILOSTAZOL [Suspect]
     Indication: THROMBOSIS IN DEVICE
     Route: 048
  2. CILOSTAZOL [Suspect]
     Indication: PROPHYLAXIS
     Route: 048
  3. CILOSTAZOL [Suspect]
     Indication: INFARCTION
     Route: 048
  4. CLOPIDOGREL [Suspect]
     Route: 048
  5. CLOPIDOGREL [Suspect]
     Route: 048
  6. ASPIRIN [Concomitant]
  7. METOPROLOL (METOPROLOL TARTRATE) [Concomitant]
  8. NITROGLYCERIN (GLYCERYL TRINITRATE) [Concomitant]
  9. HYDROCORTISONE ACE (HYDROCORTISONE ACETATE) [Concomitant]
  10. TICLOPIDINE (TICLOPIDINE HYDROCHLORIDE) [Concomitant]
  11. GLIMEPIRIDE [Concomitant]
  12. METFORMIN AL (METFORMIN HYDROCHLORIDE) [Concomitant]
  13. ATENOLOL [Concomitant]
  14. RAMIPRIL [Concomitant]
  15. ISOSORBIDE DINITRATE [Concomitant]
  16. AMLODIPINE [Concomitant]
  17. DOCUSATE SODIUM [Concomitant]
  18. PREDNISONE [Concomitant]
  19. ENOXAPARIN [Concomitant]
  20. HYDROXYZINE (HYDROXYZINE HYDROCHLORIDE) [Concomitant]

REACTIONS (7)
  - Thrombosis in device [None]
  - Platelet count decreased [None]
  - Coronary artery thrombosis [None]
  - Myocardial infarction [None]
  - Rash maculo-papular [None]
  - Rash pruritic [None]
  - Drug hypersensitivity [None]
